FAERS Safety Report 9369924 (Version 1)
Quarter: 2013Q2

REPORT INFORMATION
  Report Type: Spontaneous
  Country: US (occurrence: None)
  Receive Date: 20130625
  Receipt Date: 20130625
  Transmission Date: 20140414
  Serious: Yes (Other)
  Sender: FDA-Public Use
  Company Number: None

PATIENT
  Sex: Female
  Weight: 82 kg

DRUGS (1)
  1. J+J BABY POWDER CRNSTCH WIALOE VITE 15OZ [Suspect]
     Indication: ACCIDENTAL EXPOSURE TO PRODUCT
     Dosage: ?LESS THAN 114 CUP,1X,NASAL
     Route: 045
     Dates: start: 20130611, end: 20130611

REACTIONS (4)
  - Accidental exposure to product [None]
  - Dyspnoea [None]
  - Cough [None]
  - Speech disorder [None]
